FAERS Safety Report 23980208 (Version 1)
Quarter: 2024Q2

REPORT INFORMATION
  Report Type: Spontaneous
  Country: US (occurrence: US)
  Receive Date: 20240617
  Receipt Date: 20240617
  Transmission Date: 20240716
  Serious: No
  Sender: FDA-Public Use
  Company Number: US-ABBVIE-5796605

PATIENT
  Sex: Female

DRUGS (1)
  1. HUMIRA [Suspect]
     Active Substance: ADALIMUMAB
     Indication: Crohn^s disease
     Dosage: STOP DATE WAS END OF SEPTEMBER, OR BEGINNING OF OCTOBER 2023
     Route: 058
     Dates: start: 202303, end: 2023

REACTIONS (15)
  - Skin disorder [Unknown]
  - Muscle disorder [Unknown]
  - Immune system disorder [Not Recovered/Not Resolved]
  - Therapeutic product effect decreased [Unknown]
  - Multi-organ disorder [Unknown]
  - Illness [Not Recovered/Not Resolved]
  - Skin reaction [Unknown]
  - Limb injury [Not Recovered/Not Resolved]
  - Rash [Unknown]
  - Cardiac disorder [Unknown]
  - Cerebral disorder [Unknown]
  - Arthropathy [Unknown]
  - Spinal disorder [Unknown]
  - Infection [Not Recovered/Not Resolved]
  - Autoimmune disorder [Unknown]

NARRATIVE: CASE EVENT DATE: 20230101
